FAERS Safety Report 7843483-7 (Version None)
Quarter: 2011Q4

REPORT INFORMATION
  Report Type: 
  Country: None (occurrence: None)
  Receive Date: 20111025
  Receipt Date: 20110915
  Transmission Date: 20120403
  Serious: Yes (Other)
  Sender: FDA-Public Use
  Company Number: GB-ROCHE-GNE324628

PATIENT

DRUGS (9)
  1. LUCENTIS [Suspect]
     Indication: PRODUCT USED FOR UNKNOWN INDICATION
     Dosage: LEFT EYE
     Route: 050
     Dates: start: 20101125, end: 20101125
  2. LUCENTIS [Suspect]
     Dosage: LEFT EYE
     Route: 050
     Dates: start: 20101230, end: 20101230
  3. LUCENTIS [Suspect]
     Dosage: LEFT EYE
     Route: 050
     Dates: start: 20110421, end: 20110421
  4. LUCENTIS [Suspect]
     Dosage: LEFT EYE AND RIGHT EYE
     Route: 050
     Dates: start: 20110615, end: 20110615
  5. LUCENTIS [Suspect]
     Dosage: LEFT EYE
     Route: 050
     Dates: start: 20110310, end: 20110310
  6. LUCENTIS [Suspect]
     Dosage: LEFT EYE
     Route: 050
     Dates: start: 20110127, end: 20110127
  7. LUCENTIS [Suspect]
     Dosage: RIGHT EYE
     Route: 050
     Dates: start: 20110727, end: 20110727
  8. LUCENTIS [Suspect]
     Dosage: RIGHT EYE
     Route: 050
     Dates: start: 20110518, end: 20110518
  9. LUCENTIS [Suspect]
     Dosage: LEFT EYE
     Route: 050
     Dates: start: 20110713, end: 20110713

REACTIONS (2)
  - EYE INFECTION [None]
  - INAPPROPRIATE SCHEDULE OF DRUG ADMINISTRATION [None]
